FAERS Safety Report 4906785-X (Version None)
Quarter: 2006Q1

REPORT INFORMATION
  Report Type: 
  Country: None (occurrence: None)
  Receive Date: 20060207
  Receipt Date: 20060127
  Transmission Date: 20060701
  Serious: Yes (Other)
  Sender: FDA-Public Use
  Company Number: 2005S1000207

PATIENT
  Age: 35 Year
  Sex: Female

DRUGS (1)
  1. SORIATANE [Suspect]
     Dosage: PO
     Route: 048
     Dates: start: 20030201, end: 20030831

REACTIONS (3)
  - DRUG EXPOSURE BEFORE PREGNANCY [None]
  - NORMAL NEWBORN [None]
  - PREGNANCY [None]
